FAERS Safety Report 9398497 (Version 1)
Quarter: 2013Q3

REPORT INFORMATION
  Report Type: Spontaneous
  Country: IT (occurrence: IT)
  Receive Date: 20130712
  Receipt Date: 20130712
  Transmission Date: 20140515
  Serious: Yes (Other)
  Sender: FDA-Public Use
  Company Number: IT-TEVA-416986ISR

PATIENT
  Age: 61 Year
  Sex: Male

DRUGS (4)
  1. OLANZAPINA TEVA [Suspect]
     Indication: BIPOLAR DISORDER
     Dosage: 7.5 MILLIGRAM DAILY;
     Route: 048
     Dates: start: 20130101, end: 20130406
  2. DELORAZEPAM [Concomitant]
     Dosage: 2.5 MILLIGRAM DAILY;
  3. TOLEP 300 MG [Concomitant]
     Dosage: 900 MILLIGRAM DAILY;
     Route: 048
  4. ZARELIS 75 MG [Concomitant]

REACTIONS (4)
  - Psychotic disorder [Recovered/Resolved]
  - Mood swings [Recovered/Resolved]
  - Abnormal behaviour [Recovered/Resolved]
  - Disturbance in attention [Recovered/Resolved]
